FAERS Safety Report 18636045 (Version 1)
Quarter: 2020Q4

REPORT INFORMATION
  Report Type: Spontaneous
  Country: SE (occurrence: SE)
  Receive Date: 20201218
  Receipt Date: 20201218
  Transmission Date: 20210114
  Serious: Yes (Other)
  Sender: FDA-Public Use
  Company Number: SE-IPSEN BIOPHARMACEUTICALS, INC.-2020-25493

PATIENT
  Sex: Female

DRUGS (4)
  1. SOMATULINE AUTOGEL [Suspect]
     Active Substance: LANREOTIDE ACETATE
     Indication: BLOOD INSULIN INCREASED
     Dosage: DOSE NOT REPORTED
     Route: 065
     Dates: start: 202011
  2. SOMATULINE AUTOGEL [Suspect]
     Active Substance: LANREOTIDE ACETATE
     Indication: OFF LABEL USE
  3. FELODIPINE. [Concomitant]
     Active Substance: FELODIPINE
     Indication: BLOOD PRESSURE INCREASED
     Dates: start: 202011
  4. ENALAPRIL [Concomitant]
     Active Substance: ENALAPRIL
     Indication: BLOOD PRESSURE INCREASED
     Dosage: SINCE YEARS

REACTIONS (7)
  - Blood pressure increased [Unknown]
  - Rib fracture [Recovered/Resolved]
  - Constipation [Unknown]
  - Blood pressure decreased [Unknown]
  - Off label use [Unknown]
  - Fall [Recovered/Resolved]
  - Gastrointestinal sounds abnormal [Unknown]

NARRATIVE: CASE EVENT DATE: 2020
